FAERS Safety Report 7971590-7 (Version None)
Quarter: 2011Q4

REPORT INFORMATION
  Report Type: 
  Country: None (occurrence: None)
  Receive Date: 20111212
  Receipt Date: 20111205
  Transmission Date: 20120403
  Serious: Yes (Hospitalization)
  Sender: FDA-Public Use
  Company Number: PT-PFIZER INC-2011296112

PATIENT
  Age: 75 Year
  Sex: Male

DRUGS (7)
  1. GLICLAZIDE [Concomitant]
     Indication: TYPE 2 DIABETES MELLITUS
  2. INDAPAMIDE [Concomitant]
     Indication: HYPERTENSION
  3. GABAPENTIN [Suspect]
     Indication: HERPES ZOSTER
  4. OMEPRAZOLE [Suspect]
     Indication: DUODENAL ULCER
  5. FLUCONAZOLE [Suspect]
     Indication: OESOPHAGEAL CANDIDIASIS
     Route: 048
  6. VALACICLOVIR [Suspect]
     Indication: HERPES ZOSTER
     Dosage: UNK
  7. FOSINOPRIL [Concomitant]
     Indication: HYPERTENSION

REACTIONS (3)
  - PSEUDOMEMBRANOUS COLITIS [None]
  - LIVER FUNCTION TEST ABNORMAL [None]
  - OESOPHAGEAL CANDIDIASIS [None]
